FAERS Safety Report 5890992-6 (Version None)
Quarter: 2008Q3

REPORT INFORMATION
  Report Type: 
  Country: None (occurrence: None)
  Receive Date: 20080922
  Receipt Date: 20080916
  Transmission Date: 20090109
  Serious: Yes (Other)
  Sender: FDA-Public Use
  Company Number: B0535997A

PATIENT
  Age: 78 Year
  Sex: Female

DRUGS (1)
  1. VALTREX [Suspect]
     Indication: HERPES ZOSTER
     Dosage: 1000MG THREE TIMES PER DAY
     Route: 048
     Dates: start: 20080901, end: 20080903

REACTIONS (3)
  - ALTERED STATE OF CONSCIOUSNESS [None]
  - DISORIENTATION [None]
  - NERVOUS SYSTEM DISORDER [None]
